FAERS Safety Report 12961511 (Version 2)
Quarter: 2016Q4

REPORT INFORMATION
  Report Type: Spontaneous
  Country: ES (occurrence: ES)
  Receive Date: 20161121
  Receipt Date: 20161130
  Transmission Date: 20170207
  Serious: Yes (Other)
  Sender: FDA-Public Use
  Company Number: ES-GILEAD-2016-0244054

PATIENT
  Age: 53 Year
  Sex: Male
  Weight: 78 kg

DRUGS (4)
  1. DACLATASVIR. [Suspect]
     Active Substance: DACLATASVIR
     Dosage: 60 MG, QD
     Route: 065
  2. DACLATASVIR. [Suspect]
     Active Substance: DACLATASVIR
     Indication: CHRONIC HEPATITIS C
     Dosage: 30 MG, QD
     Route: 065
     Dates: start: 20140619
  3. TRAJENTA [Concomitant]
     Active Substance: LINAGLIPTIN
     Indication: TYPE 2 DIABETES MELLITUS
  4. SOVALDI [Suspect]
     Active Substance: SOFOSBUVIR
     Indication: CHRONIC HEPATITIS C
     Dosage: 400 MG, QD
     Route: 065
     Dates: start: 20140619

REACTIONS (8)
  - Portal hypertension [Unknown]
  - Drug ineffective [Unknown]
  - Varices oesophageal [Unknown]
  - Hepatitis C [Unknown]
  - Gastric disorder [Unknown]
  - Leukopenia [Unknown]
  - Thrombocytopenia [Unknown]
  - Viral mutation identified [Unknown]
